FAERS Safety Report 25040829 (Version 1)
Quarter: 2025Q1

REPORT INFORMATION
  Report Type: Spontaneous
  Country: CN (occurrence: CN)
  Receive Date: 20250305
  Receipt Date: 20250305
  Transmission Date: 20250409
  Serious: Yes (Other)
  Sender: MYLAN
  Company Number: CN-MYLANLABS-2025M1018058

PATIENT
  Age: 50 Year
  Sex: Male
  Weight: 67 kg

DRUGS (1)
  1. LIPITOR [Suspect]
     Active Substance: ATORVASTATIN CALCIUM
     Indication: Nephrotic syndrome
     Dosage: 20 MILLIGRAM, QD
     Dates: start: 20250109, end: 20250213

REACTIONS (3)
  - Blood creatine phosphokinase increased [Recovering/Resolving]
  - Alanine aminotransferase increased [Recovering/Resolving]
  - Off label use [Unknown]

NARRATIVE: CASE EVENT DATE: 20250109
